FAERS Safety Report 14669574 (Version 1)
Quarter: 2018Q1

REPORT INFORMATION
  Report Type: Spontaneous
  Country: CA (occurrence: CA)
  Receive Date: 20180322
  Receipt Date: 20180322
  Transmission Date: 20180509
  Serious: Yes (Life-Threatening, Disabling, Other)
  Sender: FDA-Public Use
  Company Number: CA-BAYER-2018-051712

PATIENT
  Age: 27 Year
  Sex: Female
  Weight: 68.93 kg

DRUGS (2)
  1. MIRENA [Suspect]
     Active Substance: LEVONORGESTREL
     Indication: CONTRACEPTION
  2. MIRENA [Suspect]
     Active Substance: LEVONORGESTREL
     Indication: CONTRACEPTION
     Dosage: 20 MCG/24HR, CONT
     Route: 015

REACTIONS (7)
  - Irritability [Recovered/Resolved]
  - Depression [Recovered/Resolved]
  - Stress [Recovered/Resolved]
  - Weight increased [Recovered/Resolved]
  - Suicidal ideation [Recovered/Resolved]
  - Uterine spasm [Recovered/Resolved]
  - Emotional disorder [Recovered/Resolved]
